FAERS Safety Report 26170338 (Version 1)
Quarter: 2025Q4

REPORT INFORMATION
  Report Type: Report from Study
  Country: US (occurrence: None)
  Receive Date: 20251217
  Receipt Date: 20251217
  Transmission Date: 20260119
  Serious: Yes (Hospitalization)
  Sender: UCB
  Company Number: US-UCBSA-2025079125

PATIENT

DRUGS (1)
  1. ROTIGOTINE [Suspect]
     Active Substance: ROTIGOTINE
     Indication: Restless legs syndrome
     Dosage: 8 MILLIGRAM, 1 PATCH, DAILY (QD)

REACTIONS (3)
  - Nephrolithiasis [Unknown]
  - Sepsis [Unknown]
  - Incorrect dose administered [Unknown]
